FAERS Safety Report 8544282-3 (Version None)
Quarter: 2012Q3

REPORT INFORMATION
  Report Type: 
  Country: None (occurrence: None)
  Receive Date: 20120727
  Receipt Date: 20120716
  Transmission Date: 20120928
  Serious: Yes (Hospitalization, Other)
  Sender: FDA-Public Use
  Company Number: US-009507513-1201USA02282

PATIENT

DRUGS (6)
  1. ACTONEL [Suspect]
     Indication: OSTEOPENIA
     Dosage: 35 MG, UNK
     Route: 048
     Dates: start: 20020801, end: 20050601
  2. FOSAMAX [Suspect]
     Indication: OSTEOPENIA
     Dosage: 10 MG, UNK
     Route: 048
     Dates: start: 20010901, end: 20011201
  3. FOSAMAX [Suspect]
     Dosage: 70 MG, UNK
     Route: 048
     Dates: start: 20011201, end: 20020801
  4. FOSAMAX PLUS D [Suspect]
     Indication: OSTEOPENIA
     Dosage: 70 MG, UNK
     Route: 048
     Dates: start: 20061001, end: 20090301
  5. FOSAMAX [Suspect]
     Dosage: 70 MG, UNK
     Route: 048
     Dates: start: 20050701, end: 20060901
  6. ALENDRONATE SODIUM [Suspect]
     Indication: OSTEOPENIA
     Dosage: 70 MG, UNK
     Route: 048
     Dates: start: 20090401, end: 20110101

REACTIONS (30)
  - FIBROCYSTIC BREAST DISEASE [None]
  - PRODUCTIVE COUGH [None]
  - OSTEOPOROSIS [None]
  - FEMUR FRACTURE [None]
  - NEUROPATHY PERIPHERAL [None]
  - NASAL CONGESTION [None]
  - BALANCE DISORDER [None]
  - INTERVERTEBRAL DISC DEGENERATION [None]
  - RADICULAR PAIN [None]
  - ANAEMIA POSTOPERATIVE [None]
  - INCONTINENCE [None]
  - NIPPLE DISORDER [None]
  - INSOMNIA [None]
  - NECK PAIN [None]
  - SKIN CANCER [None]
  - LOW TURNOVER OSTEOPATHY [None]
  - ARTHRITIS [None]
  - PRURITUS [None]
  - FALL [None]
  - OBSESSIVE-COMPULSIVE DISORDER [None]
  - URTICARIA CHRONIC [None]
  - ULCER [None]
  - GASTROOESOPHAGEAL REFLUX DISEASE [None]
  - SPINAL COLUMN INJURY [None]
  - PHARYNGITIS [None]
  - LUMBAR VERTEBRAL FRACTURE [None]
  - DEAFNESS [None]
  - HAND FRACTURE [None]
  - JOINT INJURY [None]
  - SLEEP DISORDER [None]
